FAERS Safety Report 13494799 (Version 2)
Quarter: 2017Q2

REPORT INFORMATION
  Report Type: Spontaneous
  Country: US (occurrence: US)
  Receive Date: 20170428
  Receipt Date: 20170502
  Transmission Date: 20170830
  Serious: No
  Sender: FDA-Public Use
  Company Number: US-PFIZER INC-2017183028

PATIENT
  Age: 9 Year
  Sex: Male
  Weight: 33 kg

DRUGS (2)
  1. QUILLIVANT XR [Suspect]
     Active Substance: METHYLPHENIDATE HYDROCHLORIDE
     Indication: ATTENTION DEFICIT/HYPERACTIVITY DISORDER
     Dosage: 3.5 ML, 1X/DAY
     Dates: start: 201512
  2. QUILLIVANT XR [Suspect]
     Active Substance: METHYLPHENIDATE HYDROCHLORIDE
     Dosage: 2.5ML - 4ML, PER DAY (2ML AT 7:15 AM AND 1.5ML AT 7:45 AM)

REACTIONS (6)
  - Hypersensitivity [Unknown]
  - Sensation of foreign body [Unknown]
  - Anxiety [Unknown]
  - Wheezing [Unknown]
  - Scratch [Unknown]
  - Crying [Unknown]

NARRATIVE: CASE EVENT DATE: 201703
